FAERS Safety Report 14708907 (Version 4)
Quarter: 2020Q3

REPORT INFORMATION
  Report Type: Report from Study
  Country: JP (occurrence: JP)
  Receive Date: 20180403
  Receipt Date: 20200710
  Transmission Date: 20201102
  Serious: Yes (Hospitalization)
  Sender: FDA-Public Use
  Company Number: JP-ACTELION-A-CH2017-157897

PATIENT
  Age: 71 Year
  Sex: Female
  Weight: 35.6 kg

DRUGS (27)
  1. ALDACTONE A [Concomitant]
     Active Substance: SPIRONOLACTONE
     Dosage: 50 MG, QD
  2. ZOLPIDEM [Concomitant]
     Active Substance: ZOLPIDEM TARTRATE
     Dosage: 5 MG, QD
     Route: 048
     Dates: start: 20190108
  3. ATORVASTATIN CALCIUM TRIHYDRATE [Concomitant]
     Active Substance: ATORVASTATIN CALCIUM
     Indication: DYSLIPIDAEMIA
     Dosage: 10 MG, QD
  4. PARIET [Concomitant]
     Active Substance: RABEPRAZOLE SODIUM
     Dosage: 10 MG, QD
     Dates: end: 20171024
  5. CARVEDILOL. [Concomitant]
     Active Substance: CARVEDILOL
     Dosage: 5 MG, QD
     Dates: start: 20170523, end: 20170809
  6. FUROSEMIDE. [Concomitant]
     Active Substance: FUROSEMIDE
     Dosage: 40 MG, QD
     Route: 048
     Dates: start: 20170804, end: 20190305
  7. OPSUMIT [Suspect]
     Active Substance: MACITENTAN
     Dosage: 10 MG, QD
     Route: 048
     Dates: start: 20150831, end: 20150928
  8. OPSUMIT [Suspect]
     Active Substance: MACITENTAN
     Dosage: 10 MG, QD
     Route: 048
     Dates: start: 20151218
  9. UPTRAVI [Suspect]
     Active Substance: SELEXIPAG
     Dosage: 0.8 MCG, BID
     Route: 048
     Dates: start: 20170523
  10. BAYASPIRIN [Concomitant]
     Active Substance: ASPIRIN
     Dosage: 100 MG, QD
  11. SAMSCA [Concomitant]
     Active Substance: TOLVAPTAN
     Dosage: 7.5 MG, QD
  12. FUROSEMIDE. [Concomitant]
     Active Substance: FUROSEMIDE
     Dosage: 20  MG, QD
     Route: 048
     Dates: start: 20190305
  13. TAKECAB [Concomitant]
     Active Substance: VONOPRAZAN FUMARATE
     Dosage: 20 MG, QD
     Dates: start: 20180802
  14. UPTRAVI [Suspect]
     Active Substance: SELEXIPAG
     Dosage: 0.6 MCG, BID
     Route: 048
     Dates: start: 20170509, end: 20170522
  15. AMIODARONE [Concomitant]
     Active Substance: AMIODARONE
     Dosage: 400 MG, QD
     Dates: start: 20170714, end: 20170809
  16. UPTRAVI [Suspect]
     Active Substance: SELEXIPAG
     Indication: PULMONARY ARTERIAL HYPERTENSION
     Dosage: 0.2 MCG, BID
     Route: 048
     Dates: start: 20170418, end: 20170424
  17. CARELOAD [Concomitant]
     Active Substance: BERAPROST SODIUM
  18. ZOLPIDEM [Concomitant]
     Active Substance: ZOLPIDEM TARTRATE
     Indication: INSOMNIA
     Dosage: 2.5 MG, QD
     Route: 048
     Dates: end: 20190108
  19. ARTIST [Concomitant]
     Active Substance: CARVEDILOL
     Dosage: 20 MG, QD
     Dates: end: 20170523
  20. BELSOMRA [Concomitant]
     Active Substance: SUVOREXANT
     Indication: INSOMNIA
     Dosage: 15 MG, QD
     Dates: start: 20180925, end: 20181211
  21. ADCIRCA [Concomitant]
     Active Substance: TADALAFIL
     Dosage: 40 MG, QD
     Route: 048
  22. LUPRAC [Concomitant]
     Active Substance: TORSEMIDE
     Dosage: 2 MG, QD
     Dates: start: 20170704, end: 20170801
  23. OPSUMIT [Suspect]
     Active Substance: MACITENTAN
     Indication: PULMONARY ARTERIAL HYPERTENSION
     Dosage: 5 MG, QD
     Route: 048
     Dates: start: 20150929, end: 20151203
  24. UPTRAVI [Suspect]
     Active Substance: SELEXIPAG
     Dosage: 0.4 MCG, BID
     Route: 048
     Dates: start: 20170425, end: 20170508
  25. ELIQUIS [Concomitant]
     Active Substance: APIXABAN
     Dosage: 5 MG, QD
  26. TRICHLORMETHIAZIDE [Concomitant]
     Active Substance: TRICHLORMETHIAZIDE
  27. FERROUS SULFATE. [Concomitant]
     Active Substance: FERROUS SULFATE
     Indication: ANAEMIA
     Dosage: 420 MG, QD
     Dates: end: 20170809

REACTIONS (7)
  - Cardiac failure [Recovering/Resolving]
  - Malaise [Recovered/Resolved]
  - Blood pressure decreased [Recovered/Resolved]
  - Dyspnoea exertional [Recovered/Resolved]
  - Abdominal distension [Recovered/Resolved]
  - Atrial tachycardia [Recovered/Resolved]
  - Cardiac ablation [Unknown]

NARRATIVE: CASE EVENT DATE: 20150928
